FAERS Safety Report 4772237-3 (Version None)
Quarter: 2005Q3

REPORT INFORMATION
  Report Type: 
  Country: None (occurrence: None)
  Receive Date: 20050919
  Receipt Date: 20050308
  Transmission Date: 20060218
  Serious: No
  Sender: FDA-Public Use
  Company Number: US-BRISTOL-MYERS SQUIBB COMPANY-12891198

PATIENT
  Age: 29 Year
  Sex: Male
  Weight: 181 kg

DRUGS (1)
  1. DEFINITY [Suspect]
     Route: 040
     Dates: start: 20050308, end: 20050308

REACTIONS (2)
  - RASH [None]
  - URTICARIA [None]
